FAERS Safety Report 4345866-9 (Version None)
Quarter: 2004Q2

REPORT INFORMATION
  Report Type: 
  Country: None (occurrence: None)
  Receive Date: 20040421
  Receipt Date: 20040407
  Transmission Date: 20050107
  Serious: Yes (Death, Other)
  Sender: FDA-Public Use
  Company Number: SX04010016

PATIENT
  Age: 52 Year
  Sex: Female

DRUGS (17)
  1. XOPENEX [Suspect]
     Indication: ASTHMA
     Dosage: 1.25 MCG/3ML4XD INHALATION
     Route: 055
     Dates: start: 20031124, end: 20031125
  2. CEPHALEXIN [Concomitant]
  3. XYPREXA [Concomitant]
  4. DIFLUCAN [Concomitant]
  5. FLU SHOT [Concomitant]
  6. FLONASE [Concomitant]
  7. PULMICORT [Concomitant]
  8. ADVAIR DISKUS 100/50 [Concomitant]
  9. SINGULAIR [Concomitant]
  10. LIPITOR [Concomitant]
  11. MOBIC [Concomitant]
  12. ZYRTEC [Concomitant]
  13. DIOVAN HCT [Concomitant]
  14. ACTOS [Concomitant]
  15. ACIPHEX [Concomitant]
  16. ELIDEL CREAM 1% [Concomitant]
  17. ATUSS NX SYRUP [Concomitant]

REACTIONS (7)
  - CARDIAC ARREST [None]
  - DRUG HYPERSENSITIVITY [None]
  - DYSPNOEA [None]
  - FUNGAL INFECTION [None]
  - HYPERSOMNIA [None]
  - RASH PRURITIC [None]
  - VENTRICULAR FIBRILLATION [None]
